FAERS Safety Report 7980453-2 (Version None)
Quarter: 2011Q4

REPORT INFORMATION
  Report Type: 
  Country: None (occurrence: None)
  Receive Date: 20111214
  Receipt Date: 20111207
  Transmission Date: 20120403
  Serious: Yes (Other)
  Sender: FDA-Public Use
  Company Number: US-GLAXOSMITHKLINE-A0944789A

PATIENT
  Age: 56 Year
  Sex: Female

DRUGS (3)
  1. LYRICA [Concomitant]
  2. DILANTIN [Concomitant]
  3. LAMICTAL [Suspect]
     Indication: CONVULSION
     Dosage: 100MG TWICE PER DAY
     Route: 048
     Dates: start: 20090101

REACTIONS (3)
  - FATIGUE [None]
  - SPEECH DISORDER [None]
  - CONVULSION [None]
